FAERS Safety Report 23287577 (Version 2)
Quarter: 2023Q4

REPORT INFORMATION
  Report Type: Spontaneous
  Country: US (occurrence: US)
  Receive Date: 20231212
  Receipt Date: 20231213
  Transmission Date: 20240109
  Serious: No
  Sender: FDA-Public Use
  Company Number: US-JNJFOC-20231227367

PATIENT
  Sex: Female

DRUGS (13)
  1. VENTAVIS [Suspect]
     Active Substance: ILOPROST
     Indication: Product used for unknown indication
     Dosage: (VENTAVIS) 20 MCG/ML INH NEBU. TEKE 0.25 ML INHALED BY MOUTH EVERY 4 HOURS. 7 BREAATH. PATIENT TAKIN
     Route: 055
  2. TYLENOL [Concomitant]
     Active Substance: ACETAMINOPHEN
     Dosage: TAKE 1 TAB BY MOUTH EVERY 4 HOURS AS NEEDED.
  3. ALBUTEROL [Concomitant]
     Active Substance: ALBUTEROL
     Dosage: 90 MCG/ACTUATION INH HFAA INHALER. TAKE 2 PUFFS INHALED BY MOUTH EVERY 4HOURE AS NEEDED  FOR WHEEZIN
  4. LETAIRIS [Concomitant]
     Active Substance: AMBRISENTAN
     Dosage: TAKA 10 MG BY MOUTH ONCE A DAY.
  5. LANOXIN [Concomitant]
     Active Substance: DIGOXIN
     Dosage: 125 MCG (0.125 MG) PO TABS. TAKE TAB BY MOUTH EVERY OTHER DAY.
  6. DILTIAZEM [Concomitant]
     Active Substance: DILTIAZEM
     Dosage: DILTIAZEM 24HR (CAROIZEM CD) 300 MG PO CP24, TAKE 1 TAB BY MOUTH TWICE DALLY BEFORE MEALS.
  7. FERROUS SULFATE [Concomitant]
     Active Substance: FERROUS SULFATE
     Dosage: 325 MG (65 MG IRON) PO TABS. TAKE 1 TAB BY MOUTH EVERY OTHER DAY.
  8. LASIX [Concomitant]
     Active Substance: FUROSEMIDE
     Dosage: TAKE 1 TAB BY MOUTH EVERY OTHER DAY.
  9. GABAPENTIN [Concomitant]
     Active Substance: GABAPENTIN
     Dosage: TAKE 0.5 TABS BY MOUTH TWICE DALLY. BREAKS TAB IN HALF
  10. COZAAR [Concomitant]
     Active Substance: LOSARTAN POTASSIUM
     Dosage: TAKE 1 TABLET BY MOUTH EVERY DAY
  11. OMEPRAZOLE [Concomitant]
     Active Substance: OMEPRAZOLE
     Dosage: TAKE 1 CAP BY MOUTH ONCE A DAY.
  12. OXYGEN [Concomitant]
     Active Substance: OXYGEN
     Dosage: 1 L/MIN AS DIRECTED CONTINUOUS
  13. SILDENAFIL [Concomitant]
     Active Substance: SILDENAFIL
     Dosage: TAKE 1 TAB BY MOUTH 3 TIMES DALLY.

REACTIONS (2)
  - Dyspnoea [Unknown]
  - Wheezing [Unknown]
